FAERS Safety Report 7866127-7 (Version None)
Quarter: 2011Q4

REPORT INFORMATION
  Report Type: 
  Country: None (occurrence: None)
  Receive Date: 20111028
  Receipt Date: 20110419
  Transmission Date: 20120403
  Serious: No
  Sender: FDA-Public Use
  Company Number: US-GLAXOSMITHKLINE-A0924822A

PATIENT
  Age: 58 Year
  Sex: Male

DRUGS (5)
  1. IBUPROFEN [Concomitant]
  2. PROMETHAZINE [Concomitant]
  3. DIABETES MEDICATION [Concomitant]
  4. ADVAIR DISKUS 100/50 [Suspect]
     Dosage: 1PUFF PER DAY
     Route: 055
     Dates: start: 20100101, end: 20110301
  5. ADVAIR DISKUS 100/50 [Suspect]
     Indication: ASTHMA
     Dosage: 1PUFF PER DAY
     Route: 055
     Dates: start: 20100301, end: 20110301

REACTIONS (6)
  - FEAR [None]
  - DRUG INEFFECTIVE [None]
  - DRY MOUTH [None]
  - PRODUCT QUALITY ISSUE [None]
  - CHOKING SENSATION [None]
  - DYSPNOEA [None]
